FAERS Safety Report 4523759-1 (Version None)
Quarter: 2004Q4

REPORT INFORMATION
  Report Type: 
  Country: None (occurrence: None)
  Receive Date: 20041119
  Receipt Date: 20040916
  Transmission Date: 20050328
  Serious: No
  Sender: FDA-Public Use
  Company Number: PHEH2004US09526

PATIENT
  Age: 60 Year
  Sex: Female

DRUGS (7)
  1. ZELNORM [Suspect]
     Indication: IRRITABLE BOWEL SYNDROME
     Dosage: 6 MG, QD, ORAL
     Route: 048
     Dates: start: 20020901, end: 20040903
  2. ZELNORM [Suspect]
     Indication: IRRITABLE BOWEL SYNDROME
     Dosage: 6 MG, QD, ORAL
     Route: 048
     Dates: start: 20040919
  3. PAXIL [Concomitant]
  4. PROTONIX [Concomitant]
  5. LODINE [Concomitant]
  6. MIRALAX [Concomitant]
  7. NEXIUM [Concomitant]

REACTIONS (4)
  - BACK PAIN [None]
  - FIBROMYALGIA [None]
  - OSTEOARTHRITIS [None]
  - PAIN IN EXTREMITY [None]
